FAERS Safety Report 4732145-0 (Version None)
Quarter: 2005Q3

REPORT INFORMATION
  Report Type: 
  Country: None (occurrence: None)
  Receive Date: 20050721
  Receipt Date: 20050520
  Transmission Date: 20060218
  Serious: No
  Sender: FDA-Public Use
  Company Number: 2005SP001208

PATIENT
  Age: 39 Year
  Sex: Male
  Weight: 65.7716 kg

DRUGS (4)
  1. LUNESTA [Suspect]
     Indication: INSOMNIA
     Dosage: 1 MG;HS;ORAL ; 2 MG;HS;ORAL ; 3 MG;HS;ORAL
     Route: 048
     Dates: start: 20050430, end: 20050430
  2. LUNESTA [Suspect]
     Indication: INSOMNIA
     Dosage: 1 MG;HS;ORAL ; 2 MG;HS;ORAL ; 3 MG;HS;ORAL
     Route: 048
     Dates: start: 20050501, end: 20050501
  3. LUNESTA [Suspect]
     Indication: INSOMNIA
     Dosage: 1 MG;HS;ORAL ; 2 MG;HS;ORAL ; 3 MG;HS;ORAL
     Route: 048
     Dates: start: 20050502
  4. AMBIEN [Concomitant]

REACTIONS (2)
  - DRUG INEFFECTIVE [None]
  - INSOMNIA [None]
